FAERS Safety Report 12280722 (Version 1)
Quarter: 2016Q2

REPORT INFORMATION
  Report Type: Spontaneous
  Country: US (occurrence: None)
  Receive Date: 20160418
  Receipt Date: 20160418
  Transmission Date: 20160815
  Serious: Yes (Other)
  Sender: FDA-Public Use
  Company Number: None

PATIENT
  Age: 6 Year
  Sex: Female
  Weight: 20.41 kg

DRUGS (5)
  1. MONTELUKAST SODIUM, 4 MG [Suspect]
     Active Substance: MONTELUKAST SODIUM
     Indication: ASTHMA
     Route: 048
     Dates: start: 20160305, end: 20160404
  2. DAILY MULTI VITAMIN [Concomitant]
  3. ZONISISMIDE [Concomitant]
  4. KEPPRA [Concomitant]
     Active Substance: LEVETIRACETAM
  5. FLOURIDE [Concomitant]

REACTIONS (6)
  - Seizure [None]
  - Decreased activity [None]
  - Agitation [None]
  - Accident [None]
  - Influenza [None]
  - Depressed mood [None]

NARRATIVE: CASE EVENT DATE: 20160305
